FAERS Safety Report 4509617-7 (Version None)
Quarter: 2004Q4

REPORT INFORMATION
  Report Type: 
  Country: None (occurrence: None)
  Receive Date: 20041124
  Receipt Date: 20040913
  Transmission Date: 20050328
  Serious: No
  Sender: FDA-Public Use
  Company Number: US-BRISTOL-MYERS SQUIBB COMPANY-12699948

PATIENT
  Age: 60 Year
  Sex: Male
  Weight: 61 kg

DRUGS (7)
  1. SUSTIVA [Suspect]
     Indication: HIV INFECTION
     Dosage: NORMALLY TAKEN AT 11:00 PM, TOOK AT 8:30 AM ON 13-SEP-2004
     Route: 048
     Dates: start: 20040604
  2. VIDEX [Concomitant]
  3. VIREAD [Concomitant]
  4. LEXIVA [Concomitant]
  5. XANAX [Concomitant]
  6. LISINOPRIL [Concomitant]
  7. COREG [Concomitant]

REACTIONS (2)
  - MEDICATION ERROR [None]
  - NO ADVERSE EFFECT [None]
